FAERS Safety Report 16717268 (Version 2)
Quarter: 2019Q3

REPORT INFORMATION
  Report Type: Report from Study
  Country: US (occurrence: US)
  Receive Date: 20190819
  Receipt Date: 20190904
  Transmission Date: 20191005
  Serious: Yes (Death, Hospitalization, Other)
  Sender: FDA-Public Use
  Company Number: US-GILEAD-2019-0424084

PATIENT
  Age: 81 Year
  Sex: Female

DRUGS (4)
  1. AMBRISENTAN [Suspect]
     Active Substance: AMBRISENTAN
     Indication: PULMONARY HYPERTENSION
     Dosage: 5 MG, QD
     Route: 065
  2. ADVAIR HFA [Concomitant]
     Active Substance: FLUTICASONE PROPIONATE\SALMETEROL XINAFOATE
  3. PRAVASTATIN. [Concomitant]
     Active Substance: PRAVASTATIN
  4. ADEMPAS [Concomitant]
     Active Substance: RIOCIGUAT

REACTIONS (4)
  - Dyspnoea [Recovered/Resolved]
  - Hip fracture [Unknown]
  - Cardiac failure congestive [Recovered/Resolved]
  - Death [Fatal]

NARRATIVE: CASE EVENT DATE: 20190626
